FAERS Safety Report 16443517 (Version 2)
Quarter: 2019Q3

REPORT INFORMATION
  Report Type: Report from Study
  Country: JP (occurrence: JP)
  Receive Date: 20190618
  Receipt Date: 20190806
  Transmission Date: 20191004
  Serious: Yes (Death, Other)
  Sender: FDA-Public Use
  Company Number: JP-BRISTOL-MYERS SQUIBB COMPANY-BMS-2019-059190

PATIENT
  Age: 73 Year
  Sex: Male
  Weight: 63.7 kg

DRUGS (1)
  1. NIVOLUMAB [Suspect]
     Active Substance: NIVOLUMAB
     Indication: GASTRIC CANCER
     Dosage: 190 MILLIGRAM
     Route: 065
     Dates: start: 20180110, end: 20180301

REACTIONS (3)
  - Contusion [Unknown]
  - Malignant neoplasm progression [Fatal]
  - Fall [Unknown]
